FAERS Safety Report 16299498 (Version 2)
Quarter: 2019Q2

REPORT INFORMATION
  Report Type: Report from Study
  Country: GR (occurrence: GR)
  Receive Date: 20190510
  Receipt Date: 20190625
  Transmission Date: 20190711
  Serious: Yes (Hospitalization, Other)
  Sender: FDA-Public Use
  Company Number: GR-ACTELION-A-CH2018-182581

PATIENT
  Age: 66 Year
  Sex: Female
  Weight: 85 kg

DRUGS (15)
  1. AMBRISENTAN [Concomitant]
     Active Substance: AMBRISENTAN
     Indication: PULMONARY ARTERIAL HYPERTENSION
     Dosage: 5 MG, QD
     Route: 048
     Dates: start: 20160909, end: 20161101
  2. UPTRAVI [Suspect]
     Active Substance: SELEXIPAG
     Indication: PULMONARY ARTERIAL HYPERTENSION
     Dosage: 3200 MCG, QD
     Route: 048
     Dates: start: 20180816, end: 20180828
  3. ADCIRCA [Concomitant]
     Active Substance: TADALAFIL
     Indication: PULMONARY ARTERIAL HYPERTENSION
     Dosage: 40 MG, QD
     Route: 048
     Dates: start: 20161101
  4. ADCIRCA [Concomitant]
     Active Substance: TADALAFIL
     Dosage: 20 MG, QD
     Route: 048
     Dates: start: 20160909, end: 20161004
  5. AMBRISENTAN [Concomitant]
     Active Substance: AMBRISENTAN
     Dosage: 10 MG, QD
     Route: 048
     Dates: start: 20161101
  6. UPTRAVI [Suspect]
     Active Substance: SELEXIPAG
     Dosage: 400 MCG, QD
     Route: 048
     Dates: start: 20180612, end: 20180622
  7. UPTRAVI [Suspect]
     Active Substance: SELEXIPAG
     Dosage: 1600 MCG, QD
     Route: 048
     Dates: start: 20180709, end: 20180720
  8. UPTRAVI [Suspect]
     Active Substance: SELEXIPAG
     Dosage: 2000 MG, QD
     Route: 048
     Dates: start: 20180720, end: 20180730
  9. UPTRAVI [Suspect]
     Active Substance: SELEXIPAG
     Dosage: 2800 MG, QD
     Route: 048
     Dates: start: 20180807, end: 20180816
  10. THYROHORMONE [Concomitant]
     Active Substance: LEVOTHYROXINE SODIUM
     Indication: HYPOTHYROIDISM
     Dosage: UNK
     Route: 048
  11. UPTRAVI [Suspect]
     Active Substance: SELEXIPAG
     Dosage: 1200 MG, QD
     Route: 048
     Dates: start: 20180630, end: 20180710
  12. UPTRAVI [Suspect]
     Active Substance: SELEXIPAG
     Dosage: 2400 MG, QD
     Route: 048
     Dates: start: 20180727, end: 20180807
  13. UPTRAVI [Suspect]
     Active Substance: SELEXIPAG
     Dosage: 2800 MCG, QD
     Route: 048
     Dates: start: 20180828, end: 20190125
  14. GLUCOPHAGE [Concomitant]
     Active Substance: METFORMIN HYDROCHLORIDE
     Indication: TYPE 2 DIABETES MELLITUS
     Dosage: UNK
     Route: 048
  15. UPTRAVI [Suspect]
     Active Substance: SELEXIPAG
     Dosage: 800 MCG, QD
     Route: 048
     Dates: start: 20180622, end: 20180709

REACTIONS (11)
  - Condition aggravated [Unknown]
  - Hypotension [Unknown]
  - Right ventricular failure [Unknown]
  - Dizziness [Recovered/Resolved]
  - Heart rate increased [Recovered/Resolved]
  - Orthostatic hypotension [Recovered/Resolved]
  - Hyperhidrosis [Recovered/Resolved]
  - Nausea [Recovered/Resolved]
  - Pulmonary arterial hypertension [Unknown]
  - Disease progression [Unknown]
  - Pulmonary hypertension [Unknown]

NARRATIVE: CASE EVENT DATE: 20180828
